FAERS Safety Report 5028496-5 (Version None)
Quarter: 2006Q2

REPORT INFORMATION
  Report Type: 
  Country: None (occurrence: None)
  Receive Date: 20060617
  Receipt Date: 20060602
  Transmission Date: 20061013
  Serious: Yes (Hospitalization)
  Sender: FDA-Public Use
  Company Number: CZ-ABBOTT-06P-217-0335061-00

PATIENT
  Sex: Female
  Weight: 67 kg

DRUGS (4)
  1. HUMIRA [Suspect]
     Indication: RHEUMATOID ARTHRITIS
     Route: 058
     Dates: start: 20040903
  2. TRAMADOL HYDROCHLORIDE [Concomitant]
     Indication: RHEUMATOID ARTHRITIS
     Route: 048
     Dates: start: 20010201
  3. RENPRESS [Concomitant]
     Indication: HYPERTENSION
     Route: 048
     Dates: start: 20030301
  4. BETALOCK [Concomitant]
     Indication: HYPERTENSION
     Route: 048
     Dates: start: 20050501

REACTIONS (2)
  - ESCHERICHIA URINARY TRACT INFECTION [None]
  - SPINAL DECOMPRESSION [None]
